FAERS Safety Report 7547031-0 (Version None)
Quarter: 2011Q2

REPORT INFORMATION
  Report Type: 
  Country: None (occurrence: None)
  Receive Date: 20110607
  Receipt Date: 20110525
  Transmission Date: 20111010
  Serious: Yes (Death)
  Sender: FDA-Public Use
  Company Number: B0722253A

PATIENT
  Sex: 0

DRUGS (2)
  1. TOPOTECAN HYDROCHLORIDE [Suspect]
     Indication: NON-SMALL CELL LUNG CANCER
     Dosage: 10 MG/KG / INTRAVENOUS
     Route: 042
  2. BEVACIZUMAB (FORMULATION UNKNOWN) [Suspect]
     Indication: NON-SMALL CELL LUNG CANCER
     Dosage: INTRAVENOUS
     Route: 042

REACTIONS (1)
  - PULMONARY HAEMORRHAGE [None]
